FAERS Safety Report 4765751-8 (Version None)
Quarter: 2005Q3

REPORT INFORMATION
  Report Type: 
  Country: None (occurrence: None)
  Receive Date: 20050912
  Receipt Date: 20050831
  Transmission Date: 20060218
  Serious: Yes (Hospitalization)
  Sender: FDA-Public Use
  Company Number: PHBS2005IT12915

PATIENT
  Age: 37 Year
  Sex: Male

DRUGS (1)
  1. TORECAN [Suspect]
     Indication: VERTIGO
     Dosage: 2 DF/D
     Route: 048
     Dates: start: 20050822, end: 20050824

REACTIONS (3)
  - DYSKINESIA [None]
  - EXTRAPYRAMIDAL DISORDER [None]
  - SCOTOMA [None]
